FAERS Safety Report 8092445-6 (Version None)
Quarter: 2012Q1

REPORT INFORMATION
  Report Type: 
  Country: None (occurrence: None)
  Receive Date: 20120128
  Receipt Date: 20110728
  Transmission Date: 20120608
  Serious: No
  Sender: FDA-Public Use
  Company Number: US-ABBOTT-11P-163-0842296-00

PATIENT
  Sex: Female
  Weight: 86.26 kg

DRUGS (7)
  1. HUMIRA [Suspect]
     Indication: PSORIATIC ARTHROPATHY
     Route: 058
     Dates: start: 20080101, end: 20110101
  2. HERBAL LIFE [Suspect]
     Indication: WEIGHT DECREASED
     Dosage: SEVERAL TABLETS MULTIPLE TIMES A DAY
     Dates: start: 20100501, end: 20101101
  3. HUMIRA [Suspect]
     Route: 058
     Dates: start: 20110101
  4. CRESTOR [Concomitant]
     Indication: BLOOD CHOLESTEROL INCREASED
  5. UNKNOWN HYPOGLYCEMIC MEDICATION [Concomitant]
     Indication: DIABETES MELLITUS
  6. UNKNOWN BLOOD PRESSURE MEDICATION [Concomitant]
     Indication: HYPERTENSION
  7. LEVOTHYROXINE SODIUM [Concomitant]
     Indication: HYPOTHYROIDISM

REACTIONS (6)
  - HEPATIC ENZYME INCREASED [None]
  - FEELING ABNORMAL [None]
  - SKIN EXFOLIATION [None]
  - BLOOD PRESSURE INCREASED [None]
  - RENAL FAILURE [None]
  - ENZYME ABNORMALITY [None]
